FAERS Safety Report 15744084 (Version 2)
Quarter: 2019Q1

REPORT INFORMATION
  Report Type: Report from Study
  Country: US (occurrence: US)
  Receive Date: 20181220
  Receipt Date: 20190121
  Transmission Date: 20190417
  Serious: Yes (Hospitalization, Other)
  Sender: FDA-Public Use
  Company Number: US-AMGEN-USASL2018178514

PATIENT
  Age: 62 Year
  Sex: Male

DRUGS (1)
  1. ENBREL [Suspect]
     Active Substance: ETANERCEPT
     Indication: RHEUMATOID ARTHRITIS
     Dosage: 50 MG, QWK
     Route: 065

REACTIONS (6)
  - Intervertebral disc space narrowing [Recovered/Resolved]
  - Diarrhoea haemorrhagic [Recovered/Resolved]
  - Respiratory tract infection [Unknown]
  - Fall [Unknown]
  - Spinal fracture [Unknown]
  - Malaise [Unknown]

NARRATIVE: CASE EVENT DATE: 2018
